FAERS Safety Report 13914042 (Version 1)
Quarter: 2017Q3

REPORT INFORMATION
  Report Type: Spontaneous
  Country: US (occurrence: US)
  Receive Date: 20170828
  Receipt Date: 20170828
  Transmission Date: 20171127
  Serious: No
  Sender: FDA-Public Use
  Company Number: US-ROCHE-1122388

PATIENT
  Sex: Male

DRUGS (6)
  1. NUTROPIN [Suspect]
     Active Substance: SOMATROPIN
     Indication: DWARFISM
     Route: 058
  2. NUTROPIN [Suspect]
     Active Substance: SOMATROPIN
     Indication: GROWTH HORMONE DEFICIENCY
  3. HYDROCORTISONE. [Concomitant]
     Active Substance: HYDROCORTISONE
     Route: 042
  4. NUTROPIN [Suspect]
     Active Substance: SOMATROPIN
     Indication: MICROCEPHALY
  5. NUTROPIN [Suspect]
     Active Substance: SOMATROPIN
     Indication: DYSMORPHISM
  6. TESTOSTERON [Concomitant]
     Active Substance: TESTOSTERONE
     Route: 030

REACTIONS (1)
  - Blood glucose fluctuation [Unknown]
